FAERS Safety Report 21847214 (Version 1)
Quarter: 2023Q1

REPORT INFORMATION
  Report Type: Spontaneous
  Country: US (occurrence: US)
  Receive Date: 20230111
  Receipt Date: 20230111
  Transmission Date: 20230418
  Serious: No
  Sender: FDA-Public Use
  Company Number: US-009507513-2301USA000345

PATIENT

DRUGS (2)
  1. ZERBAXA [Suspect]
     Active Substance: CEFTOLOZANE SULFATE\TAZOBACTAM SODIUM
     Dosage: 3 GRAM IN 250ML NS, OVER 3 HOURS, Q8H
     Dates: start: 20221229
  2. SODIUM CHLORIDE [Suspect]
     Active Substance: SODIUM CHLORIDE
     Dosage: 250ML NS, OVER 3 HOURS, Q8H
     Dates: start: 20221229

REACTIONS (5)
  - Product storage error [Unknown]
  - Product preparation issue [Unknown]
  - Product use issue [Unknown]
  - Incorrect drug administration rate [Unknown]
  - No adverse event [Unknown]

NARRATIVE: CASE EVENT DATE: 20221229
